FAERS Safety Report 9223216 (Version 1)
Quarter: 2013Q2

REPORT INFORMATION
  Report Type: Spontaneous
  Country: US (occurrence: US)
  Receive Date: 20130410
  Receipt Date: 20130410
  Transmission Date: 20140414
  Serious: Yes (Other)
  Sender: FDA-Public Use
  Company Number: PHEH2013US008074

PATIENT
  Age: 33 Year
  Sex: Female
  Weight: 66.67 kg

DRUGS (9)
  1. AFINITOR [Suspect]
     Indication: TUBEROUS SCLEROSIS
     Dosage: 12.5 MG, DAILY
     Route: 048
     Dates: start: 201012
  2. LAMICTAL [Concomitant]
     Indication: CONVULSION
     Dosage: 600 MG
  3. LAMICTAL [Concomitant]
     Dosage: 200 MG
  4. BANZEL [Concomitant]
     Indication: CONVULSION
     Dosage: 600 MG, BID
  5. TOPAMAX [Concomitant]
     Indication: CONVULSION
     Dosage: 300 MG
  6. TOPAMAX [Concomitant]
     Dosage: 100 MG
  7. KLONOPIN [Concomitant]
     Indication: CONVULSION
     Dosage: 1.5 MG
  8. DOXEPIN [Concomitant]
     Indication: CONVULSION
  9. DOXEPIN [Concomitant]
     Dosage: 5 MG

REACTIONS (1)
  - Renal cyst [Not Recovered/Not Resolved]
